FAERS Safety Report 17324197 (Version 7)
Quarter: 2023Q2

REPORT INFORMATION
  Report Type: Spontaneous
  Country: US (occurrence: US)
  Receive Date: 20200127
  Receipt Date: 20230606
  Transmission Date: 20230722
  Serious: Yes (Other)
  Sender: FDA-Public Use
  Company Number: US-GILEAD-2020-0448289

PATIENT
  Age: 60 Year
  Sex: Male
  Weight: 88.889 kg

DRUGS (54)
  1. VIREAD [Suspect]
     Active Substance: TENOFOVIR DISOPROXIL FUMARATE
     Indication: HIV infection
     Dosage: UNK
     Route: 048
     Dates: start: 20080307, end: 20190220
  2. VIREAD [Suspect]
     Active Substance: TENOFOVIR DISOPROXIL FUMARATE
     Dosage: UNK
     Route: 048
     Dates: start: 201902, end: 20190220
  3. TENOFOVIR DISOPROXIL FUMARATE [Suspect]
     Active Substance: TENOFOVIR DISOPROXIL FUMARATE
     Indication: HIV infection
     Dosage: UNK
     Route: 048
     Dates: start: 20190220
  4. EMTRIVA [Concomitant]
     Active Substance: EMTRICITABINE
  5. VITAMINS [Concomitant]
     Active Substance: VITAMINS
  6. NEPHPLEX RX [Concomitant]
     Active Substance: ASCORBIC ACID\BIOTIN\COBALAMIN\FOLIC ACID\NIACINAMIDE\PANTOTHENIC ACID\PYRIDOXINE HYDROCHLORIDE\RIBO
  7. SEVELAMER HYDROCHLORIDE [Concomitant]
     Active Substance: SEVELAMER HYDROCHLORIDE
  8. VITAMIN D NOS [Concomitant]
     Active Substance: VITAMIN D NOS
  9. ASPIRIN [Concomitant]
     Active Substance: ASPIRIN
  10. BACTRIM [Concomitant]
     Active Substance: SULFAMETHOXAZOLE\TRIMETHOPRIM
  11. CORTISONE [Concomitant]
     Active Substance: CORTISONE
  12. CYCLOSPORINE [Concomitant]
     Active Substance: CYCLOSPORINE
  13. ESOMEPRAZOLE [Concomitant]
     Active Substance: ESOMEPRAZOLE
  14. HEPARIN [Concomitant]
     Active Substance: HEPARIN SODIUM
  15. LASIX [Concomitant]
     Active Substance: FUROSEMIDE
  16. OMEPRAZOLE [Concomitant]
     Active Substance: OMEPRAZOLE
  17. PRAVASTATIN [Concomitant]
     Active Substance: PRAVASTATIN
  18. PREDNISOLONE [Concomitant]
     Active Substance: PREDNISOLONE
  19. SIMVASTATIN [Concomitant]
     Active Substance: SIMVASTATIN
  20. VANCOMYCIN [Concomitant]
     Active Substance: VANCOMYCIN
  21. NORVIR [Concomitant]
     Active Substance: RITONAVIR
  22. PREZISTA [Concomitant]
     Active Substance: DARUNAVIR ETHANOLATE
  23. RETROVIR [Concomitant]
     Active Substance: ZIDOVUDINE
  24. TIVICAY [Concomitant]
     Active Substance: DOLUTEGRAVIR SODIUM
  25. ZIAGEN [Concomitant]
     Active Substance: ABACAVIR SULFATE
  26. TRAMADOL [Concomitant]
     Active Substance: TRAMADOL
  27. GUAIFENESIN [Concomitant]
     Active Substance: GUAIFENESIN
  28. CLOBETASOL [Concomitant]
     Active Substance: CLOBETASOL
  29. MINOCYCLINE [Concomitant]
     Active Substance: MINOCYCLINE HYDROCHLORIDE
  30. ATARAX ANTI ITCH LOTION [Concomitant]
  31. ACETAMINOPHEN [Concomitant]
     Active Substance: ACETAMINOPHEN
  32. PEG 3350 [Concomitant]
     Active Substance: POLYETHYLENE GLYCOL 3350
  33. IMODIUM [Concomitant]
     Active Substance: LOPERAMIDE HYDROCHLORIDE
  34. LOPRESSOR [Concomitant]
     Active Substance: METOPROLOL TARTRATE
  35. CIPROFLOXACIN [Concomitant]
     Active Substance: CIPROFLOXACIN
  36. LEVAQUIN [Concomitant]
     Active Substance: LEVOFLOXACIN
  37. VIAGRA [Concomitant]
     Active Substance: SILDENAFIL CITRATE
  38. AZITHROMYCIN [Concomitant]
     Active Substance: AZITHROMYCIN
  39. RESTASIS [Concomitant]
     Active Substance: CYCLOSPORINE
  40. PRAVACHOL [Concomitant]
     Active Substance: PRAVASTATIN SODIUM
  41. LYRICA [Concomitant]
     Active Substance: PREGABALIN
  42. NORTRIPTYLINE [Concomitant]
     Active Substance: NORTRIPTYLINE
  43. GABAPENTIN [Concomitant]
     Active Substance: GABAPENTIN
  44. NIZORAL CONDITIONE [Concomitant]
  45. COLACE [Concomitant]
     Active Substance: DOCUSATE SODIUM
  46. MIRALAX [Concomitant]
     Active Substance: POLYETHYLENE GLYCOL 3350
  47. DOCUSATE [Concomitant]
     Active Substance: DOCUSATE
  48. SENNA LEAF [Concomitant]
     Active Substance: SENNA LEAF
  49. NEXIUM [Concomitant]
     Active Substance: ESOMEPRAZOLE MAGNESIUM
  50. IBUPROFEN [Concomitant]
     Active Substance: IBUPROFEN
  51. NAPROXEN [Concomitant]
     Active Substance: NAPROXEN
  52. DICLOFENAC [Concomitant]
     Active Substance: DICLOFENAC
  53. POLYETHYLENE GLYCOL 3350 [Concomitant]
     Active Substance: POLYETHYLENE GLYCOL 3350
  54. CALCIUM [Concomitant]
     Active Substance: CALCIUM

REACTIONS (10)
  - End stage renal disease [Not Recovered/Not Resolved]
  - Osteoporosis [Not Recovered/Not Resolved]
  - Chronic kidney disease [Not Recovered/Not Resolved]
  - Osteonecrosis [Not Recovered/Not Resolved]
  - Condition aggravated [Not Recovered/Not Resolved]
  - Tooth injury [Unknown]
  - Osteopenia [Not Recovered/Not Resolved]
  - Emotional distress [Unknown]
  - Pain [Unknown]
  - Blood creatinine increased [Not Recovered/Not Resolved]

NARRATIVE: CASE EVENT DATE: 20150813
